FAERS Safety Report 6413450-9 (Version None)
Quarter: 2009Q4

REPORT INFORMATION
  Report Type: 
  Country: None (occurrence: None)
  Receive Date: 20091020
  Receipt Date: 20091008
  Transmission Date: 20100525
  Serious: Yes (Other)
  Sender: FDA-Public Use
  Company Number: SPV1-2009-01424

PATIENT
  Age: 59 Year
  Sex: Male

DRUGS (7)
  1. FOSRENOL [Suspect]
     Indication: HYPERPHOSPHATAEMIA
     Dosage: ORAL
     Route: 048
     Dates: start: 20090608, end: 20090620
  2. FIRSTCIN (CEFOZOPRAN HYDROCHLORIDE) [Concomitant]
  3. AMLODINE (AMLODIPINE) [Concomitant]
  4. LASIX [Concomitant]
  5. CALCIUM LACTATE (CALCIUM LACTATE) [Concomitant]
  6. RABEPRAZOLE SODIUM [Concomitant]
  7. CEFOZOPRAN HYDROCHLORIDE (CEFOZOPRAN HYDROCHLORIDE) [Concomitant]

REACTIONS (6)
  - ALANINE AMINOTRANSFERASE INCREASED [None]
  - BLOOD ALKALINE PHOSPHATASE INCREASED [None]
  - GAMMA-GLUTAMYLTRANSFERASE INCREASED [None]
  - HEPATIC FUNCTION ABNORMAL [None]
  - LIVER DISORDER [None]
  - RASH [None]
